FAERS Safety Report 6634311-6 (Version None)
Quarter: 2010Q1

REPORT INFORMATION
  Report Type: 
  Country: None (occurrence: None)
  Receive Date: 20100312
  Receipt Date: 20100312
  Transmission Date: 20100710
  Serious: Yes (Other)
  Sender: FDA-Public Use
  Company Number: None

PATIENT
  Age: 77 Year
  Sex: Female
  Weight: 54.4316 kg

DRUGS (2)
  1. PLAVIX [Suspect]
     Indication: ANTICOAGULANT THERAPY
     Dosage: 75 MG 1 X PER DAY ORAL
     Route: 048
     Dates: start: 20081101, end: 20090801
  2. PLAVIX [Suspect]
     Indication: MYOCARDIAL INFARCTION
     Dosage: 75 MG 1 X PER DAY ORAL
     Route: 048
     Dates: start: 20081101, end: 20090801

REACTIONS (4)
  - DYSPEPSIA [None]
  - GASTRITIS [None]
  - GASTROINTESTINAL ULCER [None]
  - OESOPHAGITIS [None]
